FAERS Safety Report 5648026-4 (Version None)
Quarter: 2008Q1

REPORT INFORMATION
  Report Type: 
  Country: None (occurrence: None)
  Receive Date: 20080304
  Receipt Date: 20080220
  Transmission Date: 20080703
  Serious: Yes (Other)
  Sender: FDA-Public Use
  Company Number: US-BAYER-200813129NA

PATIENT
  Age: 27 Year
  Sex: Female
  Weight: 59 kg

DRUGS (3)
  1. MIRENA [Suspect]
     Indication: CONTRACEPTION
     Route: 015
     Dates: start: 20020131
  2. NATURAL PRODUCTS [Concomitant]
  3. MULTI-VITAMIN [Concomitant]

REACTIONS (48)
  - ABDOMINAL PAIN [None]
  - ACNE [None]
  - ALLERGY TO CHEMICALS [None]
  - ALOPECIA [None]
  - AMENORRHOEA [None]
  - ARTHRALGIA [None]
  - BACK PAIN [None]
  - BACTERIAL INFECTION [None]
  - BALANCE DISORDER [None]
  - BREAST PAIN [None]
  - COMPLICATION OF DEVICE REMOVAL [None]
  - DEPRESSION SUICIDAL [None]
  - DERMAL CYST [None]
  - DERMATITIS ALLERGIC [None]
  - DERMATITIS CONTACT [None]
  - DIZZINESS [None]
  - DYSPAREUNIA [None]
  - EYE SWELLING [None]
  - FUNGAL INFECTION [None]
  - FURUNCLE [None]
  - GENITAL PAIN [None]
  - GENITAL RASH [None]
  - HYPERSENSITIVITY [None]
  - HYPOAESTHESIA [None]
  - IMPAIRED WORK ABILITY [None]
  - IUD MIGRATION [None]
  - LACRIMATION INCREASED [None]
  - LOSS OF CONSCIOUSNESS [None]
  - LOSS OF LIBIDO [None]
  - METRORRHAGIA [None]
  - MOOD SWINGS [None]
  - MULTIPLE CHEMICAL SENSITIVITY [None]
  - MUSCLE SPASMS [None]
  - NAUSEA [None]
  - OEDEMA GENITAL [None]
  - OVARIAN CYST [None]
  - PAIN [None]
  - PARAESTHESIA [None]
  - POST PROCEDURAL HAEMORRHAGE [None]
  - PROCEDURAL PAIN [None]
  - PSYCHIATRIC SYMPTOM [None]
  - QUALITY OF LIFE DECREASED [None]
  - RASH [None]
  - RASH GENERALISED [None]
  - SCAR [None]
  - VAGINAL DISCHARGE [None]
  - VERTIGO [None]
  - VULVOVAGINAL PRURITUS [None]
